FAERS Safety Report 21856871 (Version 1)
Quarter: 2023Q1

REPORT INFORMATION
  Report Type: Spontaneous
  Country: FR (occurrence: FR)
  Receive Date: 20230113
  Receipt Date: 20230113
  Transmission Date: 20230418
  Serious: Yes (Other)
  Sender: FDA-Public Use
  Company Number: FR-AFSSAPS-PO20222118

PATIENT
  Age: 74 Year
  Sex: Male
  Weight: 72.5 kg

DRUGS (4)
  1. HYDROXYZINE HYDROCHLORIDE [Suspect]
     Active Substance: HYDROXYZINE HYDROCHLORIDE
     Indication: Agitation
     Dosage: 25 MILLIGRAM
     Route: 048
     Dates: start: 20221220, end: 20221220
  2. NICARDIPINE [Suspect]
     Active Substance: NICARDIPINE
     Indication: Hypertensive crisis
     Dosage: 26 MILLIGRAM
     Route: 042
     Dates: start: 20221220, end: 20221222
  3. CEFOTAXIME [Suspect]
     Active Substance: CEFOTAXIME SODIUM
     Indication: Bronchitis
     Dosage: 3 GRAM
     Route: 042
     Dates: start: 20221218, end: 20221223
  4. AUGMENTIN [Suspect]
     Active Substance: AMOXICILLIN\CLAVULANATE POTASSIUM
     Indication: Antibiotic therapy
     Dosage: 3 GRAM
     Route: 048
     Dates: start: 20221214, end: 20221216

REACTIONS (1)
  - Hepatic cytolysis [Recovering/Resolving]

NARRATIVE: CASE EVENT DATE: 20221222
